FAERS Safety Report 24686542 (Version 1)
Quarter: 2024Q4

REPORT INFORMATION
  Report Type: Spontaneous
  Country: CH (occurrence: CH)
  Receive Date: 20241202
  Receipt Date: 20241202
  Transmission Date: 20250114
  Serious: Yes (Hospitalization, Other)
  Sender: MERCK
  Company Number: None

PATIENT
  Age: 75 Year
  Sex: Male

DRUGS (18)
  1. PREVYMIS [Interacting]
     Active Substance: LETERMOVIR
     Indication: Antiviral prophylaxis
     Dosage: 0-2-0-0
     Route: 048
  2. PROGRAF [Interacting]
     Active Substance: TACROLIMUS
     Indication: Prophylaxis against graft versus host disease
     Dosage: 1 MG AM 09.08.24, 1-0-0-1.5MG AM 10.08.24, T?GLICH NACH SPIEGELBESTIMMUNG. 1.5-0-0-0 AM 13.08.202...
     Route: 048
     Dates: start: 202407
  3. CRESEMBA [Interacting]
     Active Substance: ISAVUCONAZONIUM SULFATE
     Indication: Pulmonary mucormycosis
     Dosage: SWITCHING FROM CRESEMBA TO AMBISOME ON 09.08.2024, AGAIN FROM 23.08.2024 - DATO
     Route: 048
     Dates: start: 20240725, end: 20240809
  4. CRESEMBA [Interacting]
     Active Substance: ISAVUCONAZONIUM SULFATE
     Dosage: SWITCHING FROM CRESEMBA TO AMBISOME ON 09.08.2024, AGAIN FROM 23.08.2024 - DATO
     Route: 048
     Dates: start: 20240823
  5. AMBISOME [Interacting]
     Active Substance: AMPHOTERICIN B
     Indication: Pulmonary mucormycosis
     Dosage: 6H INFUSION
     Route: 040
     Dates: start: 20240809, end: 20240822
  6. CELLCEPT [Interacting]
     Active Substance: MYCOPHENOLATE MOFETIL
     Indication: Prophylaxis against graft versus host disease
     Dosage: 1000 MILLIGRAM
     Route: 048
     Dates: end: 20240806
  7. VALACYCLOVIR HYDROCHLORIDE [Suspect]
     Active Substance: VALACYCLOVIR HYDROCHLORIDE
     Indication: Antiviral prophylaxis
     Dosage: 1-0-0-0
     Route: 048
  8. SULFAMETHOXAZOLE\TRIMETHOPRIM [Suspect]
     Active Substance: SULFAMETHOXAZOLE\TRIMETHOPRIM
     Indication: Antifungal prophylaxis
     Dosage: MO, MI, FR
     Route: 048
  9. PANTOPRAZOLE [Suspect]
     Active Substance: PANTOPRAZOLE
     Indication: Prophylaxis against gastrointestinal ulcer
     Dosage: 1-0-0-0
  10. CHOLECALCIFEROL [Concomitant]
     Active Substance: CHOLECALCIFEROL
     Dosage: 4000 I.E./ML, DIENSTAG
  11. MAGNESIUM ASPARTATE HYDROCHLORIDE [Concomitant]
     Active Substance: MAGNESIUM ASPARTATE HYDROCHLORIDE
     Dosage: 0-1-0-0
  12. CALCIUM CARBONATE\CHOLECALCIFEROL [Concomitant]
     Active Substance: CALCIUM CARBONATE\CHOLECALCIFEROL
     Dosage: 1-0-0-0
  13. SUPRADYN PRO ENERGY COMPLEX [Concomitant]
     Dosage: 0-1-0-0
  14. FRAGMIN [Concomitant]
     Active Substance: DALTEPARIN SODIUM
     Dosage: 5000 I.E./0.2ML,  0-1-0-0
  15. MAGNESIUM SULFATE [Concomitant]
     Active Substance: MAGNESIUM SULFATE
     Dates: end: 20240810
  16. ACETAMINOPHEN [Concomitant]
     Active Substance: ACETAMINOPHEN
     Dosage: BIS 11.08.2024, DANN BEI BEDARF.
     Dates: end: 20240811
  17. CLEMASTINE FUMARATE [Concomitant]
     Active Substance: CLEMASTINE FUMARATE
     Dates: end: 20240811
  18. FREKA-CLYSS [Concomitant]
     Dates: end: 20240812

REACTIONS (3)
  - Acute kidney injury [Recovering/Resolving]
  - Drug interaction [Recovering/Resolving]
  - Drug interaction [Recovering/Resolving]

NARRATIVE: CASE EVENT DATE: 20240701
